FAERS Safety Report 5501484-8 (Version None)
Quarter: 2007Q4

REPORT INFORMATION
  Report Type: 
  Country: None (occurrence: None)
  Receive Date: 20071019
  Receipt Date: 20070730
  Transmission Date: 20080405
  Serious: Yes (Other)
  Sender: FDA-Public Use
  Company Number: HQWYE325601AUG07

PATIENT
  Age: 55 Year
  Sex: Male
  Weight: 72.64 kg

DRUGS (2)
  1. ADVIL PM [Suspect]
     Indication: HEADACHE
     Dosage: 2 CAPSULE 1X PER 1 DAY, ORAL
     Route: 048
     Dates: start: 20070725, end: 20070726
  2. ADVIL PM [Suspect]
     Indication: INSOMNIA
     Dosage: 2 CAPSULE 1X PER 1 DAY, ORAL
     Route: 048
     Dates: start: 20070725, end: 20070726

REACTIONS (2)
  - BALANCE DISORDER [None]
  - GAIT DISTURBANCE [None]
